FAERS Safety Report 10090104 (Version 2)
Quarter: 2014Q2

REPORT INFORMATION
  Report Type: Spontaneous
  Country: US (occurrence: US)
  Receive Date: 20140421
  Receipt Date: 20140529
  Transmission Date: 20141212
  Serious: No
  Sender: FDA-Public Use
  Company Number: US-PFIZER INC-2014110509

PATIENT
  Age: 71 Year
  Sex: Female
  Weight: 58.05 kg

DRUGS (1)
  1. LYRICA [Suspect]
     Indication: NEUROPATHY PERIPHERAL
     Dosage: 100 MG, 3X/DAY

REACTIONS (3)
  - Sinus disorder [Unknown]
  - Headache [Unknown]
  - Memory impairment [Unknown]
